FAERS Safety Report 16031958 (Version 1)
Quarter: 2019Q1

REPORT INFORMATION
  Report Type: Spontaneous
  Country: JP (occurrence: JP)
  Receive Date: 20190304
  Receipt Date: 20190304
  Transmission Date: 20190418
  Serious: Yes (Death, Life-Threatening, Other)
  Sender: FDA-Public Use
  Company Number: JP-CELGENEUS-JPN-20190102562

PATIENT
  Age: 63 Year
  Sex: Male
  Weight: 63.2 kg

DRUGS (6)
  1. GEMCITABINE HYDROCHLORIDE. [Suspect]
     Active Substance: GEMCITABINE HYDROCHLORIDE
     Indication: PANCREATIC CARCINOMA
     Dosage: 1700 MILLIGRAM
     Route: 041
     Dates: start: 20181012, end: 20181207
  2. ASPIRIN. [Concomitant]
     Active Substance: ASPIRIN
     Indication: ANTIPLATELET THERAPY
     Dosage: 100 MILLIGRAM
     Route: 048
  3. PANCRELIPASE. [Concomitant]
     Active Substance: PANCRELIPASE
     Indication: PANCREATIC ENZYME REPLACEMENT THERAPY
     Dosage: 1800 MILLIGRAM
     Route: 048
     Dates: start: 20181210
  4. ESZOPICLONE. [Concomitant]
     Active Substance: ESZOPICLONE
     Indication: INSOMNIA
     Dosage: 1 MILLIGRAM
     Route: 048
     Dates: start: 20181202
  5. ABRAXANE [Suspect]
     Active Substance: PACLITAXEL
     Indication: PANCREATIC CARCINOMA
     Dosage: 220 MILLIGRAM
     Route: 041
     Dates: start: 20181012, end: 20181207
  6. WARFARIN POTASSIUM [Concomitant]
     Active Substance: WARFARIN POTASSIUM
     Indication: ANTICOAGULANT THERAPY
     Dosage: 1 MILLIGRAM
     Route: 048

REACTIONS (3)
  - Neutrophil count decreased [Unknown]
  - Interstitial lung disease [Fatal]
  - Opportunistic infection [Fatal]

NARRATIVE: CASE EVENT DATE: 20181026
